FAERS Safety Report 5885515-1 (Version None)
Quarter: 2008Q3

REPORT INFORMATION
  Report Type: 
  Country: None (occurrence: None)
  Receive Date: 20080916
  Receipt Date: 20080909
  Transmission Date: 20090109
  Serious: Yes (Other)
  Sender: FDA-Public Use
  Company Number: DE-AMGEN-US301320

PATIENT
  Sex: Female

DRUGS (1)
  1. ENBREL [Suspect]
     Indication: PSORIATIC ARTHROPATHY
     Dosage: UNKNOWN
     Route: 065

REACTIONS (6)
  - ARTHROPATHY [None]
  - DRY MOUTH [None]
  - HAEMORRHAGE [None]
  - INJECTION SITE HYPERSENSITIVITY [None]
  - MALFORMATION VENOUS [None]
  - MEMORY IMPAIRMENT [None]
